FAERS Safety Report 7676571-9 (Version None)
Quarter: 2011Q3

REPORT INFORMATION
  Report Type: 
  Country: None (occurrence: None)
  Receive Date: 20110805
  Receipt Date: 20110721
  Transmission Date: 20111222
  Serious: Yes (Life-Threatening)
  Sender: FDA-Public Use
  Company Number: TUK2011A00099

PATIENT
  Age: 62 Year
  Sex: Male

DRUGS (4)
  1. ACTOS [Suspect]
     Indication: DIABETES MELLITUS
     Dosage: (45 MG) ORAL
     Route: 048
     Dates: start: 20081001, end: 20091001
  2. GLICLAZIDE (GLICLAZIDE) [Concomitant]
  3. BEZAFIBRATE (BEZAFIBRATE) [Concomitant]
  4. METFORMIN HCL [Concomitant]

REACTIONS (1)
  - BLADDER CANCER [None]
